FAERS Safety Report 19057786 (Version 1)
Quarter: 2021Q1

REPORT INFORMATION
  Report Type: Report from Study
  Country: US (occurrence: US)
  Receive Date: 20210325
  Receipt Date: 20210325
  Transmission Date: 20210420
  Serious: Yes (Hospitalization, Other)
  Sender: FDA-Public Use
  Company Number: US-BRISTOL-MYERS SQUIBB COMPANY-BMS-2021-027900

PATIENT
  Age: 44 Year
  Sex: Female
  Weight: 71.5 kg

DRUGS (2)
  1. NIVOLUMAB [Suspect]
     Active Substance: NIVOLUMAB
     Indication: NON-SMALL CELL LUNG CANCER
     Dosage: 240 MILLIGRAM, Q2WK
     Route: 042
     Dates: start: 20210208, end: 20210308
  2. VOROLANIB [Suspect]
     Active Substance: VOROLANIB
     Indication: NON-SMALL CELL LUNG CANCER
     Dosage: 200 MILLIGRAM, QD
     Route: 065
     Dates: start: 20210208, end: 20210316

REACTIONS (1)
  - Hypoxia [Not Recovered/Not Resolved]

NARRATIVE: CASE EVENT DATE: 20210317
